FAERS Safety Report 16157213 (Version 1)
Quarter: 2019Q2

REPORT INFORMATION
  Report Type: Spontaneous
  Country: US (occurrence: US)
  Receive Date: 20190404
  Receipt Date: 20190404
  Transmission Date: 20190711
  Serious: Yes (Other)
  Sender: FDA-Public Use
  Company Number: US-BAYER-2019-065714

PATIENT
  Sex: Male
  Weight: 100 kg

DRUGS (1)
  1. BAYER ASPIRIN [Suspect]
     Active Substance: ASPIRIN
     Indication: BLOOD PRESSURE MANAGEMENT
     Dosage: 1 DF
     Route: 048

REACTIONS (4)
  - Anaphylactic shock [Unknown]
  - Drug hypersensitivity [Unknown]
  - Lip swelling [Unknown]
  - Product use in unapproved indication [Unknown]
